FAERS Safety Report 18103825 (Version 1)
Quarter: 2020Q3

REPORT INFORMATION
  Report Type: Spontaneous
  Country: JP (occurrence: JP)
  Receive Date: 20200803
  Receipt Date: 20200803
  Transmission Date: 20201103
  Serious: Yes (Life-Threatening, Hospitalization, Other)
  Sender: FDA-Public Use
  Company Number: JP-PFIZER INC-2020265008

PATIENT
  Age: 56 Year
  Sex: Female
  Weight: 55 kg

DRUGS (12)
  1. FLUCONAZOLE. [Concomitant]
     Active Substance: FLUCONAZOLE
     Dosage: 100 MG, 1X/DAY
     Route: 048
     Dates: start: 20200229, end: 20200421
  2. BLINCYTO [Concomitant]
     Active Substance: BLINATUMOMAB
     Dosage: 28 UG, 1X/DAY
     Route: 041
     Dates: start: 20200403, end: 20200423
  3. FLUDARA [Concomitant]
     Active Substance: FLUDARABINE PHOSPHATE
     Dosage: 47 MG, 1X/DAY
     Route: 041
     Dates: start: 20200515, end: 20200519
  4. BESPONSA [Suspect]
     Active Substance: INOTUZUMAB OZOGAMICIN
     Dosage: 0.5 MG/M2, CYCLIC (1X/DAY)
     Route: 041
     Dates: start: 20200312
  5. LEVOFLOXACIN. [Concomitant]
     Active Substance: LEVOFLOXACIN
     Dosage: 500 MG, 1X/DAY
     Route: 048
     Dates: start: 20200229, end: 20200421
  6. BLINCYTO [Concomitant]
     Active Substance: BLINATUMOMAB
     Dosage: 9 UG, 1X/DAY
     Route: 041
     Dates: start: 20200327, end: 20200402
  7. PROGRAF [Concomitant]
     Active Substance: TACROLIMUS
     Dosage: 1 MG, 1X/DAY
     Route: 041
     Dates: start: 20200520
  8. BESPONSA [Suspect]
     Active Substance: INOTUZUMAB OZOGAMICIN
     Indication: ACUTE LYMPHOCYTIC LEUKAEMIA RECURRENT
     Dosage: 0.8 MG/M2, CYCLIC (1X/DAY)
     Route: 041
     Dates: start: 20200227
  9. DAIPHEN [Concomitant]
     Active Substance: SULFAMETHOXAZOLE\TRIMETHOPRIM
     Dosage: UNK, 1X/DAY
     Route: 048
     Dates: start: 20200303, end: 20200414
  10. BESPONSA [Suspect]
     Active Substance: INOTUZUMAB OZOGAMICIN
     Dosage: 0.5 MG/M2, CYCLIC (1X/DAY)
     Route: 041
     Dates: start: 20200305
  11. ALKERAN [Concomitant]
     Active Substance: MELPHALAN
     Dosage: 110 MG, 1X/DAY
     Route: 041
     Dates: start: 20200518, end: 20200519
  12. EVOLTRA [Concomitant]
     Active Substance: CLOFARABINE
     Dosage: 40 MG, 1X/DAY
     Route: 041
     Dates: start: 20200502, end: 20200506

REACTIONS (41)
  - Graft versus host disease [Unknown]
  - Platelet count decreased [Unknown]
  - Pleural effusion [Unknown]
  - Neutrophil count increased [Unknown]
  - Blood lactate dehydrogenase decreased [Unknown]
  - Blood lactate dehydrogenase increased [Unknown]
  - Gamma-glutamyltransferase increased [Unknown]
  - Blood urea increased [Recovered/Resolved]
  - Blood chloride decreased [Unknown]
  - Protein urine present [Unknown]
  - Rash [Unknown]
  - White blood cell count decreased [Recovered/Resolved]
  - Protein total decreased [Unknown]
  - Blood chloride increased [Recovered/Resolved]
  - Hepatic pain [Recovered/Resolved]
  - Red blood cell count increased [Unknown]
  - Back pain [Unknown]
  - Oedema peripheral [Unknown]
  - Monocyte count increased [Unknown]
  - Blood glucose increased [Recovered/Resolved]
  - Venoocclusive liver disease [Recovering/Resolving]
  - Weight decreased [Unknown]
  - Lymphocyte count decreased [Unknown]
  - Prothrombin time shortened [Unknown]
  - C-reactive protein increased [Recovered/Resolved]
  - Liver disorder [Recovered/Resolved]
  - Diarrhoea [Unknown]
  - Abdominal pain [Unknown]
  - Urine output increased [Unknown]
  - Blood creatinine decreased [Unknown]
  - Blood alkaline phosphatase increased [Unknown]
  - Hepatosplenomegaly [Unknown]
  - Abdominal distension [Unknown]
  - Human herpesvirus 6 infection [Unknown]
  - Haemoglobin decreased [Recovered/Resolved]
  - Blood urea decreased [Recovered/Resolved]
  - Sepsis [Recovered/Resolved]
  - Blood potassium decreased [Unknown]
  - Jaundice [Unknown]
  - Hepatic function abnormal [Unknown]
  - Haematocrit decreased [Unknown]

NARRATIVE: CASE EVENT DATE: 20200227
